FAERS Safety Report 7389382-9 (Version None)
Quarter: 2011Q2

REPORT INFORMATION
  Report Type: 
  Country: None (occurrence: None)
  Receive Date: 20110401
  Receipt Date: 20110330
  Transmission Date: 20111010
  Serious: Yes (Hospitalization)
  Sender: FDA-Public Use
  Company Number: B0709753A

PATIENT
  Sex: Female
  Weight: 65 kg

DRUGS (3)
  1. PREDNISONE [Suspect]
     Indication: MULTIPLE MYELOMA
     Route: 048
     Dates: start: 20080226, end: 20080229
  2. LENALIDOMIDE [Suspect]
     Indication: MULTIPLE MYELOMA
     Route: 048
     Dates: start: 20080226, end: 20080314
  3. MELPHALAN [Suspect]
     Indication: MULTIPLE MYELOMA
     Route: 048
     Dates: start: 20080226, end: 20080229

REACTIONS (10)
  - FATIGUE [None]
  - ANAEMIA [None]
  - BLOOD CREATININE INCREASED [None]
  - PLATELET COUNT DECREASED [None]
  - THROMBOCYTOPENIA [None]
  - ACTIVITIES OF DAILY LIVING IMPAIRED [None]
  - NEUTROPHIL COUNT DECREASED [None]
  - BLOOD UREA INCREASED [None]
  - HYPOALBUMINAEMIA [None]
  - LEUKOPENIA [None]
